FAERS Safety Report 11300363 (Version 1)
Quarter: 2015Q3

REPORT INFORMATION
  Report Type: Spontaneous
  Country: US (occurrence: US)
  Receive Date: 20150722
  Receipt Date: 20150722
  Transmission Date: 20151125
  Serious: No
  Sender: FDA-Public Use
  Company Number: US-ELI_LILLY_AND_COMPANY-US201310002000

PATIENT
  Sex: Female

DRUGS (4)
  1. HUMATROPE [Suspect]
     Active Substance: SOMATROPIN
     Indication: HYPOTHALAMO-PITUITARY DISORDER
     Dosage: UNK UNK, QD
     Route: 065
  2. HUMATROPE [Suspect]
     Active Substance: SOMATROPIN
     Indication: DIABETES MELLITUS
  3. HUMATROPE [Suspect]
     Active Substance: SOMATROPIN
     Indication: THYROID DISORDER
  4. HUMATROPE [Suspect]
     Active Substance: SOMATROPIN
     Indication: HYPERTENSION

REACTIONS (2)
  - Drug dispensing error [Unknown]
  - Off label use [Unknown]
